FAERS Safety Report 9290271 (Version 1)
Quarter: 2013Q2

REPORT INFORMATION
  Report Type: Spontaneous
  Country: FR (occurrence: FR)
  Receive Date: 20130515
  Receipt Date: 20130515
  Transmission Date: 20140414
  Serious: Yes (Hospitalization)
  Sender: FDA-Public Use
  Company Number: FR-BRISTOL-MYERS SQUIBB COMPANY-18873521

PATIENT
  Age: 83 Year
  Sex: Female

DRUGS (16)
  1. HYDREA CAPS 500 MG [Suspect]
     Route: 048
     Dates: start: 1999, end: 201302
  2. FLECAINE [Suspect]
     Route: 048
     Dates: start: 1983
  3. FOLIC ACID [Concomitant]
  4. AMLODIPINE [Concomitant]
  5. AERIUS [Concomitant]
  6. DOMPERIDONE [Concomitant]
  7. SEROPLEX [Concomitant]
  8. ATARAX [Concomitant]
  9. LEVOTHYROX [Concomitant]
  10. FORLAX [Concomitant]
  11. EUPANTOL [Concomitant]
  12. GABAPENTINE [Concomitant]
     Dates: start: 201302
  13. OXYNORM [Concomitant]
     Dates: start: 201302
  14. OXYCONTIN [Concomitant]
     Dates: start: 201302
  15. LOVENOX [Concomitant]
     Dates: start: 20130131
  16. INNOHEP [Concomitant]
     Dates: start: 20130211

REACTIONS (1)
  - Interstitial lung disease [Not Recovered/Not Resolved]
